FAERS Safety Report 10418277 (Version 1)
Quarter: 2014Q3

REPORT INFORMATION
  Report Type: Spontaneous
  Country: US (occurrence: None)
  Receive Date: 20140828
  Receipt Date: 20140828
  Transmission Date: 20150326
  Serious: Yes (Death, Hospitalization)
  Sender: FDA-Public Use
  Company Number: None

PATIENT
  Age: 67 Year
  Sex: Female
  Weight: 81.2 kg

DRUGS (8)
  1. CYCLOPHOSPHAMIDE. [Suspect]
     Active Substance: CYCLOPHOSPHAMIDE
  2. ONDANSETRON [Concomitant]
     Active Substance: ONDANSETRON
  3. TAXOTERE [Suspect]
     Active Substance: DOCETAXEL
  4. PANTOPRAZOLE [Concomitant]
     Active Substance: PANTOPRAZOLE SODIUM
  5. SPIRONOLACTONE. [Concomitant]
     Active Substance: SPIRONOLACTONE
  6. METOPROLOL [Concomitant]
     Active Substance: METOPROLOL
  7. ZOLPIDEM TARTRATE. [Concomitant]
     Active Substance: ZOLPIDEM TARTRATE
  8. DEXAMETHASONE. [Concomitant]
     Active Substance: DEXAMETHASONE

REACTIONS (5)
  - Gait disturbance [None]
  - Bacterial sepsis [None]
  - Mental status changes [None]
  - Multi-organ failure [None]
  - Neutropenia [None]

NARRATIVE: CASE EVENT DATE: 20121205
